FAERS Safety Report 5154020-2 (Version None)
Quarter: 2006Q4

REPORT INFORMATION
  Report Type: 
  Country: None (occurrence: None)
  Receive Date: 20061120
  Receipt Date: 20061107
  Transmission Date: 20070319
  Serious: Yes (Other)
  Sender: FDA-Public Use
  Company Number: FR-GLAXOSMITHKLINE-B0446491A

PATIENT

DRUGS (1)
  1. LAMICTAL [Suspect]
     Dosage: 200MG PER DAY

REACTIONS (3)
  - ATROPHY [None]
  - DRUG EXPOSURE DURING PREGNANCY [None]
  - FOETAL GROWTH RETARDATION [None]
